FAERS Safety Report 9097718 (Version 3)
Quarter: 2013Q1

REPORT INFORMATION
  Report Type: Spontaneous
  Country: SI (occurrence: SI)
  Receive Date: 20130212
  Receipt Date: 20130320
  Transmission Date: 20140127
  Serious: Yes (Hospitalization, Other)
  Sender: FDA-Public Use
  Company Number: PHHY2013SI012758

PATIENT
  Sex: 0

DRUGS (3)
  1. EXTAVIA [Suspect]
     Indication: RELAPSING-REMITTING MULTIPLE SCLEROSIS
     Dosage: 0.25 ML, QOD (ONE IN TWO DAYS)
     Route: 058
     Dates: start: 20130116, end: 20130120
  2. EXTAVIA [Suspect]
     Dosage: 0.50 ML, QOD (ONE IN TWO DAYS)
     Route: 058
     Dates: start: 20130122, end: 20130126
  3. EXTAVIA [Suspect]
     Dosage: 0.50 ML, QOD (ONE IN TWO DAYS)
     Route: 058
     Dates: start: 20130128, end: 20130128

REACTIONS (5)
  - Hypersensitivity [Recovered/Resolved]
  - Visual acuity reduced [Not Recovered/Not Resolved]
  - Rash [Recovered/Resolved]
  - Headache [Recovered/Resolved]
  - Feeling abnormal [Unknown]
